FAERS Safety Report 24587452 (Version 1)
Quarter: 2024Q4

REPORT INFORMATION
  Report Type: Spontaneous
  Country: US (occurrence: US)
  Receive Date: 20241107
  Receipt Date: 20241107
  Transmission Date: 20250114
  Serious: No
  Sender: Vantive US Healthcare
  Company Number: US-VANTIVE-2024VAN020812

PATIENT

DRUGS (1)
  1. EXTRANEAL [Suspect]
     Active Substance: CALCIUM CHLORIDE\ICODEXTRIN\MAGNESIUM CHLORIDE\SODIUM CHLORIDE\SODIUM LACTATE
     Route: 033

REACTIONS (5)
  - Peripheral swelling [Unknown]
  - Dizziness [Unknown]
  - Rash [Unknown]
  - Skin exfoliation [Unknown]
  - Cough [Unknown]

NARRATIVE: CASE EVENT DATE: 20241028
